FAERS Safety Report 19901494 (Version 1)
Quarter: 2021Q3

REPORT INFORMATION
  Report Type: Spontaneous
  Country: US (occurrence: US)
  Receive Date: 20210930
  Receipt Date: 20210930
  Transmission Date: 20211014
  Serious: No
  Sender: FDA-Public Use
  Company Number: US-ALKERMES INC.-ALK-2021-005030

PATIENT
  Age: 38 Year
  Sex: Male

DRUGS (2)
  1. VIVITROL [Suspect]
     Active Substance: NALTREXONE
     Indication: ALCOHOLISM
     Dosage: 380 MILLIGRAM, QMO
     Route: 030
     Dates: start: 20210803, end: 20210803
  2. VIVITROL [Suspect]
     Active Substance: NALTREXONE
     Dosage: 380 MILLIGRAM, QMO
     Route: 030

REACTIONS (8)
  - Injection site swelling [Unknown]
  - Injection site mass [Recovered/Resolved]
  - Alcoholism [Recovered/Resolved]
  - Product physical consistency issue [Recovered/Resolved]
  - Injection site induration [Unknown]
  - Product solubility abnormal [Recovered/Resolved]
  - Injection site reaction [Unknown]
  - Injection site pain [Unknown]

NARRATIVE: CASE EVENT DATE: 202108
